FAERS Safety Report 6266738-9 (Version None)
Quarter: 2009Q3

REPORT INFORMATION
  Report Type: 
  Country: None (occurrence: None)
  Receive Date: 20090714
  Receipt Date: 20070604
  Transmission Date: 20100115
  Serious: Yes (Other)
  Sender: FDA-Public Use
  Company Number: US-ASTRAZENECA-2006UW23550

PATIENT
  Age: 19594 Day
  Sex: Female
  Weight: 179 kg

DRUGS (42)
  1. SEROQUEL [Suspect]
     Indication: DEPRESSION
     Route: 048
     Dates: start: 19990101, end: 20050101
  2. SEROQUEL [Suspect]
     Indication: SCHIZOPHRENIA
     Route: 048
     Dates: start: 19990101, end: 20050101
  3. SEROQUEL [Suspect]
     Indication: BIPOLAR DISORDER
     Route: 048
     Dates: start: 19990101, end: 20050101
  4. SEROQUEL [Suspect]
     Dosage: 25MG - 200MG
     Route: 048
     Dates: start: 20020408
  5. SEROQUEL [Suspect]
     Dosage: 25MG - 200MG
     Route: 048
     Dates: start: 20020408
  6. SEROQUEL [Suspect]
     Dosage: 25MG - 200MG
     Route: 048
     Dates: start: 20020408
  7. CLOZARIL [Concomitant]
  8. OLANZAPINE [Concomitant]
  9. IMDUR [Concomitant]
     Route: 048
  10. REGLAN [Concomitant]
     Route: 048
  11. NORVASC [Concomitant]
     Dosage: 2.5MG - 5MG
     Route: 048
  12. KLONOPIN [Concomitant]
     Dosage: 1MG-2MG
     Route: 048
  13. PROVENTIL-HFA [Concomitant]
  14. PRAVACHOL [Concomitant]
     Route: 048
     Dates: end: 20070314
  15. ATROVENT [Concomitant]
  16. METHADONE HCL [Concomitant]
     Dosage: 10MG -30MG
     Route: 048
  17. LASIX [Concomitant]
     Route: 048
  18. PHENERGAN [Concomitant]
     Dosage: 12.5MG -25MG
     Route: 042
  19. LOVENOX [Concomitant]
     Route: 048
  20. ATIVAN [Concomitant]
  21. RESTORIL [Concomitant]
     Dosage: 15MG - 30MG
     Route: 048
  22. ABILIFY [Concomitant]
     Dosage: 10MG - 20MG
     Route: 048
  23. OXYCONTIN [Concomitant]
     Route: 048
  24. COMPAZINE [Concomitant]
     Route: 048
  25. ATARAX [Concomitant]
     Route: 048
  26. VISTARIL [Concomitant]
     Route: 048
  27. CYMBALTA [Concomitant]
     Dosage: 30MG - 60MG
     Route: 048
  28. CORGARD [Concomitant]
     Route: 048
  29. ALDACTONE [Concomitant]
     Route: 048
  30. DESYREL [Concomitant]
     Route: 048
  31. ADVAIR HFA [Concomitant]
  32. IMODIUM [Concomitant]
     Route: 048
  33. ULTRAM [Concomitant]
     Route: 048
  34. LEXAPRO [Concomitant]
     Route: 048
  35. HYDROMORPHONE HCL [Concomitant]
  36. ENOXAPARIN SODIUM [Concomitant]
  37. MUCINEX [Concomitant]
     Route: 048
  38. MUCINEX [Concomitant]
     Route: 048
  39. CYCLOBENZAPRINE [Concomitant]
     Route: 048
  40. TOPROL-XL [Concomitant]
     Route: 048
  41. FLUOXETINE HCL [Concomitant]
     Dosage: 10MG - 20MG
     Route: 048
  42. NEURONTIN [Concomitant]
     Dosage: 100MG -300MG
     Route: 048

REACTIONS (4)
  - GLUCOSE TOLERANCE IMPAIRED [None]
  - HYPERGLYCAEMIA [None]
  - NEUROPATHY PERIPHERAL [None]
  - PANCREATITIS [None]
